FAERS Safety Report 17223673 (Version 2)
Quarter: 2020Q1

REPORT INFORMATION
  Report Type: Report from Study
  Country: None (occurrence: BG)
  Receive Date: 20200102
  Receipt Date: 20200204
  Transmission Date: 20200409
  Serious: Yes (Hospitalization, Other)
  Sender: FDA-Public Use
  Company Number: BG-ABBVIE-19K-022-3215070-00

PATIENT
  Age: 72 Year
  Sex: Female

DRUGS (1)
  1. DUODOPA [Suspect]
     Active Substance: CARBIDOPA\LEVODOPA
     Indication: PARKINSON^S DISEASE
     Dosage: MD- 7.0 ML?CR- 3.0 ML/H?EX- 1 ML?20 MG/ML 5 MG/ML
     Route: 050
     Dates: start: 20180206, end: 20200127

REACTIONS (6)
  - Bedridden [Unknown]
  - Gait inability [Unknown]
  - Epilepsy [Not Recovered/Not Resolved]
  - Urinary incontinence [Unknown]
  - Unresponsive to stimuli [Unknown]
  - Dementia [Unknown]

NARRATIVE: CASE EVENT DATE: 20191228
